FAERS Safety Report 4293460-0 (Version None)
Quarter: 2004Q1

REPORT INFORMATION
  Report Type: 
  Country: None (occurrence: None)
  Receive Date: 20040126
  Receipt Date: 20030919
  Transmission Date: 20041129
  Serious: No
  Sender: FDA-Public Use
  Company Number: USA030844245

PATIENT
  Age: 64 Year
  Sex: Female

DRUGS (3)
  1. FORTEO [Suspect]
     Indication: OSTEOPOROSIS
     Dates: start: 20030813
  2. EVISTA [Suspect]
     Indication: OSTEOPOROSIS
  3. CALCIUM [Concomitant]

REACTIONS (8)
  - BONE DENSITY DECREASED [None]
  - DYSPEPSIA [None]
  - DYSPHAGIA [None]
  - FATIGUE [None]
  - HOT FLUSH [None]
  - INJECTION SITE ERYTHEMA [None]
  - INJECTION SITE HAEMORRHAGE [None]
  - MUSCLE CRAMP [None]
